FAERS Safety Report 7503888-0 (Version None)
Quarter: 2011Q2

REPORT INFORMATION
  Report Type: 
  Country: None (occurrence: None)
  Receive Date: 20110525
  Receipt Date: 20110509
  Transmission Date: 20111010
  Serious: Yes (Hospitalization, Other)
  Sender: FDA-Public Use
  Company Number: US-BAYER-201033161NA

PATIENT
  Age: 22 Year
  Sex: Female
  Weight: 58.957 kg

DRUGS (5)
  1. YASMIN [Suspect]
     Indication: PRODUCT USED FOR UNKNOWN INDICATION
     Dosage: UNK UNK, QD
     Route: 048
     Dates: start: 20040101, end: 20080101
  2. ADVIL LIQUI-GELS [Concomitant]
  3. ASCORBIC ACID [Concomitant]
     Dosage: UNK
     Dates: start: 20080101, end: 20090101
  4. VITAMIN D [Concomitant]
  5. ANTIBIOTICS [Concomitant]

REACTIONS (3)
  - CHOLELITHIASIS [None]
  - CHOLECYSTITIS ACUTE [None]
  - BILIARY COLIC [None]
